FAERS Safety Report 22184728 (Version 1)
Quarter: 2023Q2

REPORT INFORMATION
  Report Type: Report from Study
  Country: US (occurrence: US)
  Receive Date: 20230407
  Receipt Date: 20230407
  Transmission Date: 20230722
  Serious: Yes (Other)
  Sender: FDA-Public Use
  Company Number: US-ABBVIE-4285004

PATIENT
  Sex: Female

DRUGS (1)
  1. RINVOQ [Suspect]
     Active Substance: UPADACITINIB
     Indication: Rheumatoid arthritis
     Route: 048
     Dates: start: 20230116, end: 20230322

REACTIONS (12)
  - Carpal tunnel syndrome [Recovering/Resolving]
  - Joint swelling [Unknown]
  - Chest discomfort [Unknown]
  - Arthralgia [Not Recovered/Not Resolved]
  - Cough [Unknown]
  - Oral herpes [Unknown]
  - Respiratory symptom [Recovering/Resolving]
  - Headache [Unknown]
  - Fatigue [Unknown]
  - Upper respiratory tract congestion [Unknown]
  - Procedural site reaction [Unknown]
  - Nasopharyngitis [Unknown]
